FAERS Safety Report 7736690-5 (Version None)
Quarter: 2011Q3

REPORT INFORMATION
  Report Type: 
  Country: None (occurrence: None)
  Receive Date: 20110908
  Receipt Date: 20110830
  Transmission Date: 20111222
  Serious: Yes (Other)
  Sender: FDA-Public Use
  Company Number: GB-JNJFOC-20110900613

PATIENT
  Sex: Female

DRUGS (4)
  1. INFLIXIMAB [Suspect]
     Route: 042
     Dates: start: 20060927
  2. INFLIXIMAB [Suspect]
     Indication: RHEUMATOID ARTHRITIS
     Route: 042
     Dates: start: 20020915
  3. METHOTREXATE [Concomitant]
     Dates: start: 20020915
  4. METHOTREXATE [Concomitant]
     Dates: start: 20060927

REACTIONS (1)
  - MALIGNANT PERITONEAL NEOPLASM [None]
